FAERS Safety Report 9519115 (Version 2)
Quarter: 2013Q3

REPORT INFORMATION
  Report Type: Spontaneous
  Country: FR (occurrence: FR)
  Receive Date: 20130912
  Receipt Date: 20130912
  Transmission Date: 20140515
  Serious: Yes (Hospitalization)
  Sender: FDA-Public Use
  Company Number: FR-JNJFOC-20130206895

PATIENT
  Age: 67 Year
  Sex: Male
  Weight: 72 kg

DRUGS (11)
  1. SPORANOX [Suspect]
     Indication: BRONCHOPULMONARY ASPERGILLOSIS
     Route: 048
     Dates: start: 201107, end: 20130213
  2. VERAPAMIL [Interacting]
     Indication: PRODUCT USED FOR UNKNOWN INDICATION
     Dosage: 240
     Route: 065
  3. CO-APROVEL [Concomitant]
     Indication: HYPERTENSION
     Route: 048
  4. ALDACTONE [Concomitant]
     Indication: HYPERTENSION
     Route: 048
  5. AMLOR [Concomitant]
     Indication: HYPERTENSION
     Route: 048
  6. COOLMETEC [Concomitant]
     Indication: HYPERTENSION
     Route: 048
     Dates: start: 201204
  7. ISOPTINE [Concomitant]
     Route: 065
     Dates: start: 201204
  8. HYPERIUM [Concomitant]
     Indication: HYPERTENSION
     Dosage: 2
     Route: 065
     Dates: start: 201206, end: 20130213
  9. IRBESARTAN [Concomitant]
     Indication: HYPERTENSION
     Route: 065
  10. OLMESARTAN [Concomitant]
     Indication: HYPERTENSION
     Dosage: 40
     Route: 065
  11. HYDROCHLOROTHIAZIDE [Concomitant]
     Indication: HYPERTENSION
     Dosage: 25
     Route: 065

REACTIONS (4)
  - Hypertension [Recovered/Resolved]
  - Hypokalaemia [Recovered/Resolved]
  - Drug interaction [Not Recovered/Not Resolved]
  - Oedema peripheral [Recovered/Resolved]
